FAERS Safety Report 10021395 (Version 1)
Quarter: 2014Q1

REPORT INFORMATION
  Report Type: Spontaneous
  Country: US (occurrence: None)
  Receive Date: 20140318
  Receipt Date: 20140318
  Transmission Date: 20141002
  Serious: Yes (Hospitalization)
  Sender: FDA-Public Use
  Company Number: None

PATIENT
  Age: 61 Year
  Sex: Male
  Weight: 72.58 kg

DRUGS (1)
  1. ANDRODERM [Suspect]
     Indication: HYPOPITUITARISM
     Route: 061
     Dates: start: 20140214, end: 20140304

REACTIONS (3)
  - Cerebrovascular accident [None]
  - Cerebral artery thrombosis [None]
  - Cerebral artery stenosis [None]
